FAERS Safety Report 11273296 (Version 1)
Quarter: 2015Q3

REPORT INFORMATION
  Report Type: Spontaneous
  Country: US (occurrence: US)
  Receive Date: 20150715
  Receipt Date: 20150715
  Transmission Date: 20151125
  Serious: No
  Sender: FDA-Public Use
  Company Number: US-BAUSCH-BL-2014-003828

PATIENT
  Sex: Male

DRUGS (1)
  1. ISTALOL [Suspect]
     Active Substance: TIMOLOL MALEATE
     Indication: MACULAR DEGENERATION
     Route: 047
     Dates: start: 20140705, end: 20140705

REACTIONS (5)
  - Corneal irritation [Recovered/Resolved]
  - Conjunctival haemorrhage [Recovered/Resolved]
  - Intentional product use issue [Unknown]
  - Eye irritation [Recovered/Resolved]
  - Corneal oedema [Recovered/Resolved]

NARRATIVE: CASE EVENT DATE: 20140705
